FAERS Safety Report 15299891 (Version 12)
Quarter: 2019Q2

REPORT INFORMATION
  Report Type: Report from Study
  Country: JP (occurrence: JP)
  Receive Date: 20180821
  Receipt Date: 20190626
  Transmission Date: 20190711
  Serious: Yes (Death, Life-Threatening, Hospitalization)
  Sender: FDA-Public Use
  Company Number: JP-ROCHE-2148170

PATIENT
  Age: 76 Year
  Sex: Female
  Weight: 39.3 kg

DRUGS (98)
  1. ATEZOLIZUMAB. [Suspect]
     Active Substance: ATEZOLIZUMAB
     Indication: OVARIAN CANCER
     Dosage: ON 28/JUN/2018, SHE RECEIVED THE MOST RECENT DOSE OF ATEZOLIZUMAB PRIOR TO ONSET OF SERIOUS ADVERSE
     Route: 042
     Dates: start: 20180402
  2. MAGNESIUM OXIDE. [Concomitant]
     Active Substance: MAGNESIUM OXIDE
     Indication: CONSTIPATION
     Route: 065
     Dates: start: 20180405, end: 20180626
  3. OFLOXACIN. [Concomitant]
     Active Substance: OFLOXACIN
     Indication: LUNG INFECTION
     Route: 065
     Dates: start: 20180529, end: 20180601
  4. RESTAMIN KOWA [Concomitant]
     Route: 065
     Dates: start: 20180629, end: 20180630
  5. THYRADIN-S [Concomitant]
     Active Substance: LEVOTHYROXINE
     Route: 065
     Dates: start: 20180630, end: 20180702
  6. NAFAMOSTAT [Concomitant]
     Active Substance: NAFAMOSTAT
     Indication: DISSEMINATED INTRAVASCULAR COAGULATION
     Dosage: FOR INJECTION 50 MEEK
     Route: 065
     Dates: start: 20180703, end: 20180703
  7. SUXAMETHONIUM [Concomitant]
     Active Substance: SUCCINYLCHOLINE
     Dosage: INJ. 40
     Route: 065
     Dates: start: 20180703, end: 20180703
  8. DIPRIVAN [Concomitant]
     Active Substance: PROPOFOL
     Indication: ANAESTHESIA
     Dosage: INJECTION-KIT
     Route: 065
     Dates: start: 20180703, end: 20180703
  9. CALCICOL [Concomitant]
     Active Substance: CALCIUM GLUCONATE
     Route: 065
     Dates: start: 20180719, end: 20180719
  10. MEYLON [Concomitant]
     Active Substance: SODIUM BICARBONATE
     Indication: ANAESTHESIA
     Route: 065
     Dates: start: 20180703, end: 20180703
  11. MAGNESIUM SULFATE. [Concomitant]
     Active Substance: MAGNESIUM SULFATE
     Dosage: CORRECTIVE?INJECTION 1MEQ/ML
     Route: 065
     Dates: start: 20180719, end: 20180719
  12. VANCOMYCIN HYDROCHLORIDE. [Concomitant]
     Active Substance: VANCOMYCIN HYDROCHLORIDE
     Indication: ENTERITIS INFECTIOUS
     Route: 065
     Dates: start: 20180711, end: 20180718
  13. GLUCOSE [Concomitant]
     Active Substance: DEXTROSE
     Route: 065
     Dates: start: 20180719, end: 20180719
  14. CARBOPLATIN. [Suspect]
     Active Substance: CARBOPLATIN
     Indication: OVARIAN CANCER
     Dosage: CARBOPLATIN WILL BE ADMINISTERED AT A DOSE TO ACHIEVE A TARGET AREA UNDER THE CURVE (AUC) OF 6 MILLI
     Route: 042
     Dates: start: 20180402
  15. SUVOREXANT. [Concomitant]
     Active Substance: SUVOREXANT
     Indication: INSOMNIA
     Route: 065
     Dates: start: 20180405, end: 20180626
  16. RESTAMIN KOWA [Concomitant]
     Route: 065
     Dates: start: 20180628, end: 20180628
  17. HEPARIN SODIUM. [Concomitant]
     Active Substance: HEPARIN SODIUM
     Route: 065
     Dates: start: 20180703, end: 20180726
  18. FENTANYL. [Concomitant]
     Active Substance: FENTANYL
     Indication: ANAESTHESIA
     Route: 065
     Dates: start: 20180703, end: 20180703
  19. ACOALAN [Concomitant]
     Indication: DISSEMINATED INTRAVASCULAR COAGULATION
     Route: 065
     Dates: start: 20180703, end: 20180719
  20. ACELIO [Concomitant]
     Active Substance: ACETAMINOPHEN
     Indication: PAIN
     Route: 042
     Dates: start: 20180705, end: 20180719
  21. TAKECAB [Concomitant]
     Active Substance: VONOPRAZAN FUMURATE
     Route: 065
     Dates: start: 20180712, end: 20180718
  22. NORMAL SALINE [Concomitant]
     Active Substance: SODIUM CHLORIDE
     Indication: ANAESTHESIA
     Route: 065
     Dates: start: 20180719, end: 20180719
  23. SODIUM CHLORIDE. [Concomitant]
     Active Substance: SODIUM CHLORIDE
     Indication: ELECTROLYTE SUBSTITUTION THERAPY
     Route: 065
     Dates: start: 20180725, end: 20180728
  24. NOVOLIN R [Concomitant]
     Active Substance: INSULIN HUMAN
     Indication: BLOOD GLUCOSE INCREASED
     Dosage: NOVOLIN R FLEX PEN
     Route: 065
     Dates: start: 20180730, end: 20180817
  25. BEVACIZUMAB. [Suspect]
     Active Substance: BEVACIZUMAB
     Indication: OVARIAN CANCER
     Dosage: ON 28/JUN/2018, SHE RECEIVED THE MOST RECENT DOSE OF BEVACIZUMAB (651MG) PRIOR TO EVENT ONSET.
     Route: 042
     Dates: start: 20180425
  26. PITAVASTATIN CALCIUM [Concomitant]
     Active Substance: PITAVASTATIN CALCIUM
     Indication: HYPERLIPIDAEMIA
     Route: 065
     Dates: end: 20180714
  27. DEXART [Concomitant]
     Active Substance: DEXAMETHASONE SODIUM PHOSPHATE
     Indication: PREMEDICATION
     Route: 042
     Dates: start: 20180628, end: 20180628
  28. ESLAX [Concomitant]
     Active Substance: ROCURONIUM BROMIDE
     Indication: ANAESTHESIA
     Dosage: 0MG/5.0ML
     Route: 042
     Dates: start: 20180703, end: 20180703
  29. CANCIDAS [Concomitant]
     Active Substance: CASPOFUNGIN ACETATE
     Dosage: INTRAVENOUS DRIP?INFUSION 50MG
     Route: 065
     Dates: start: 20180704, end: 20180720
  30. MIYA-BM [Concomitant]
     Active Substance: CLOSTRIDIUM BUTYRICUM SPORES STRAIN M-55
     Route: 065
     Dates: start: 20180711, end: 20180718
  31. LASIX [Concomitant]
     Active Substance: FUROSEMIDE
     Indication: POLYURIA
     Route: 065
     Dates: start: 20180711, end: 20180817
  32. ASPARA POTASSIUM [Concomitant]
     Active Substance: POTASSIUM ASPARTATE
     Route: 065
     Dates: start: 20180614, end: 20180718
  33. GLUCOSE [Concomitant]
     Active Substance: DEXTROSE
     Route: 065
     Dates: start: 20180720, end: 20180721
  34. VOLUVEN [HETASTARCH;SODIUM CHLORIDE] [Concomitant]
     Route: 065
     Dates: start: 20180719, end: 20180719
  35. GEBEN [Concomitant]
     Active Substance: SILVER SULFADIAZINE
     Indication: DECUBITUS ULCER
     Dosage: BEDSORE
     Route: 065
     Dates: start: 20180803, end: 20180805
  36. RAMOSETRON HYDROCHLORIDE [Concomitant]
     Active Substance: RAMOSETRON HYDROCHLORIDE
     Route: 065
     Dates: start: 20180607, end: 20180607
  37. RESTAMIN KOWA [Concomitant]
     Indication: PREMEDICATION
     Route: 065
     Dates: start: 20180607, end: 20180607
  38. PLATELETS [Concomitant]
     Active Substance: HUMAN PLATELET, ALLOGENIC
     Indication: TRANSFUSION
     Dosage: LEUKOCYTES REDUCED,NISSEKI?(IR-PC-LR)
     Route: 065
     Dates: start: 20180703, end: 20180815
  39. PROPOFOL. [Concomitant]
     Active Substance: PROPOFOL
     Route: 065
     Dates: start: 20180719, end: 20180719
  40. MAGNESIUM SULFATE. [Concomitant]
     Active Substance: MAGNESIUM SULFATE
     Route: 065
     Dates: start: 20180725, end: 20180725
  41. POPSCAINE [Concomitant]
     Active Substance: LEVOBUPIVACAINE HYDROCHLORIDE
     Indication: ANAESTHESIA
     Dosage: 0.5% INJ.50MG/10ML
     Route: 065
     Dates: start: 20180719, end: 20180719
  42. BROMHEXINE [Concomitant]
     Active Substance: BROMHEXINE
     Dosage: EXPECTORANT
     Route: 065
     Dates: start: 20180727, end: 20180817
  43. LOXOPROFEN [Concomitant]
     Active Substance: LOXOPROFEN
     Indication: ARTHRALGIA
     Route: 065
     Dates: start: 20180403
  44. TEPRENONE [Concomitant]
     Active Substance: TEPRENONE
     Indication: ARTHRALGIA
     Route: 065
     Dates: start: 20180403, end: 20180708
  45. GASTER [FAMOTIDINE] [Concomitant]
     Route: 065
     Dates: start: 20180628, end: 20180628
  46. METOCLOPRAMIDE. [Concomitant]
     Active Substance: METOCLOPRAMIDE
     Indication: NAUSEA
     Route: 065
     Dates: start: 20180629
  47. KCL [Concomitant]
     Active Substance: POTASSIUM CHLORIDE
     Route: 065
     Dates: start: 20180703, end: 20180726
  48. NORADRENALIN [NOREPINEPHRINE] [Concomitant]
     Active Substance: NOREPINEPHRINE
     Route: 065
     Dates: start: 20180719, end: 20180719
  49. TACHOSIL [Concomitant]
     Active Substance: FIBRINOGEN HUMAN\THROMBIN HUMAN
     Dosage: TISSUE SEALING SHEET
     Route: 065
     Dates: start: 20180703, end: 20180703
  50. PHYSIO 140 [Concomitant]
     Active Substance: CALCIUM GLUCONATE\DEXTROSE\MAGNESIUM CHLORIDE\POTASSIUM CHLORIDE\SODIUM ACETATE\SODIUM CHLORIDE\TRISODIUM CITRATE DIHYDRATE
     Route: 065
     Dates: start: 20180703, end: 20180703
  51. PHYSIO 140 [Concomitant]
     Active Substance: CALCIUM GLUCONATE\DEXTROSE\MAGNESIUM CHLORIDE\POTASSIUM CHLORIDE\SODIUM ACETATE\SODIUM CHLORIDE\TRISODIUM CITRATE DIHYDRATE
     Route: 065
     Dates: start: 20180719, end: 20180719
  52. SEVOFRANE [Concomitant]
     Active Substance: SEVOFLURANE
     Indication: ANAESTHESIA
     Route: 065
     Dates: start: 20180703, end: 20180703
  53. XYLOCAINE [Concomitant]
     Active Substance: LIDOCAINE HYDROCHLORIDE
     Indication: ANAESTHESIA
     Dosage: INJECTION POLYAMP 1%
     Route: 065
     Dates: start: 20180703, end: 20180703
  54. CALCICOL [Concomitant]
     Active Substance: CALCIUM GLUCONATE
     Indication: ANAESTHESIA
     Route: 065
     Dates: start: 20180703, end: 20180703
  55. SOLYUGEN F [Concomitant]
     Active Substance: CALCIUM CHLORIDE\POTASSIUM CHLORIDE\SODIUM ACETATE\SODIUM CHLORIDE
     Route: 065
     Dates: start: 20180719
  56. BISOLVON [Concomitant]
     Active Substance: BROMHEXINE HYDROCHLORIDE
     Route: 065
     Dates: start: 20180724, end: 20180726
  57. ROPION [Concomitant]
     Active Substance: FLURBIPROFEN AXETIL
     Dosage: ANALGESIA
     Route: 065
     Dates: start: 20180731, end: 20180802
  58. MIYA-BM [Concomitant]
     Active Substance: CLOSTRIDIUM BUTYRICUM SPORES STRAIN M-55
     Indication: CONSTIPATION
     Route: 065
     Dates: end: 20180628
  59. EDIROL [Concomitant]
     Active Substance: ELDECALCITOL
     Indication: OSTEOPOROSIS
     Route: 065
     Dates: end: 20180710
  60. LOXOPROFEN [Concomitant]
     Active Substance: LOXOPROFEN
     Indication: MYALGIA
     Route: 065
     Dates: start: 20180627, end: 20180628
  61. FAMOTIDINE. [Concomitant]
     Active Substance: FAMOTIDINE
     Indication: PREMEDICATION
     Route: 065
     Dates: start: 20180607, end: 20180607
  62. EMEND [Concomitant]
     Active Substance: APREPITANT
     Indication: NAUSEA
     Route: 065
     Dates: start: 20180607, end: 20180607
  63. EMEND [Concomitant]
     Active Substance: APREPITANT
     Route: 065
     Dates: start: 20180628, end: 20180628
  64. SOLYUGEN G [Concomitant]
     Indication: DEHYDRATION
     Route: 065
     Dates: start: 20180629, end: 20180717
  65. MAXIPIME [Concomitant]
     Active Substance: CEFEPIME HYDROCHLORIDE
     Route: 065
     Dates: start: 20180630, end: 20180702
  66. GRAN [Concomitant]
     Active Substance: FILGRASTIM
     Indication: NEUTROPENIA
     Route: 065
     Dates: start: 20180630, end: 20180706
  67. ULTIVA [Concomitant]
     Active Substance: REMIFENTANIL HYDROCHLORIDE
     Route: 065
     Dates: start: 20180719, end: 20180719
  68. PROPOFOL. [Concomitant]
     Active Substance: PROPOFOL
     Indication: ANAESTHESIA
     Route: 065
     Dates: start: 20180703, end: 20180703
  69. MAGNESIUM SULFATE. [Concomitant]
     Active Substance: MAGNESIUM SULFATE
     Indication: ANAESTHESIA
     Dosage: CORRECTIVE?INJECTION 1MEQ/ML
     Route: 065
     Dates: start: 20180703, end: 20180703
  70. HEPARIN SODIUM. [Concomitant]
     Active Substance: HEPARIN SODIUM
     Route: 065
     Dates: start: 20180704, end: 20180725
  71. PRIMPERAN [Concomitant]
     Active Substance: METOCLOPRAMIDE HYDROCHLORIDE
  72. ADRENALINE [EPINEPHRINE] [Concomitant]
     Active Substance: EPINEPHRINE
     Route: 065
     Dates: start: 20180719, end: 20180719
  73. FIBROGAMMIN P [Concomitant]
     Active Substance: FACTOR XIII CONCENTRATE (HUMAN)
     Indication: HAEMORRHAGIC DIATHESIS
     Route: 042
     Dates: start: 20180721, end: 20180725
  74. SODIUM CHLORIDE. [Concomitant]
     Active Substance: SODIUM CHLORIDE
     Route: 065
     Dates: start: 20180804, end: 20180817
  75. PACLITAXEL. [Suspect]
     Active Substance: PACLITAXEL
     Indication: OVARIAN CANCER
     Dosage: ON 28/JUN/2018, SHE RECEIVED THE MOST RECENT DOSE OF PACLITAXEL (228MG) PRIOR TO EVENT ONSET.
     Route: 042
     Dates: start: 20180402
  76. EMEND [Concomitant]
     Active Substance: APREPITANT
     Indication: PREMEDICATION
     Route: 065
     Dates: start: 20180608, end: 20180609
  77. RECOMODULIN [Concomitant]
     Active Substance: THROMBOMODULIN ALFA
     Indication: DISSEMINATED INTRAVASCULAR COAGULATION
     Dosage: INJ.12800
     Route: 065
     Dates: start: 20180703, end: 20180710
  78. FRESH FROZEN PLASMA [Concomitant]
     Active Substance: HUMAN PLASMA
     Indication: TRANSFUSION
     Dosage: FRESH FROZEN PLASMA,?LEUKOCYTES REDUCED,?NISSEKI 480
     Route: 065
     Dates: start: 20180703, end: 20180811
  79. ESLAX [Concomitant]
     Active Substance: ROCURONIUM BROMIDE
     Route: 065
     Dates: start: 20180719, end: 20180719
  80. FENTANYL. [Concomitant]
     Active Substance: FENTANYL
     Route: 065
     Dates: start: 20180719, end: 20180719
  81. ULTIVA [Concomitant]
     Active Substance: REMIFENTANIL HYDROCHLORIDE
     Indication: ANAESTHESIA
     Route: 042
     Dates: start: 20180703, end: 20180703
  82. KCL CORRECTIVE [Concomitant]
     Dosage: INJECTION 1MEQ/ML
     Route: 065
     Dates: start: 20180706, end: 20180721
  83. MIDAZOLAM [Concomitant]
     Active Substance: MIDAZOLAM HYDROCHLORIDE
     Dosage: INJECTION 10MG
     Route: 065
     Dates: start: 20180719, end: 20180722
  84. TRANSAMIN [Concomitant]
     Active Substance: TRANEXAMIC ACID
     Indication: POST PROCEDURAL HAEMORRHAGE
     Route: 065
     Dates: start: 20180719, end: 20180723
  85. SOSEGON [PENTAZOCINE] [Concomitant]
     Indication: PAIN
     Route: 065
     Dates: start: 20180813, end: 20180813
  86. HYDROXYZINE [Concomitant]
     Active Substance: HYDROXYZINE HYDROCHLORIDE
     Dosage: PARENTERAL SOLUTION?INTRODUCE SLEEP
     Route: 065
     Dates: start: 20180814, end: 20180814
  87. ELASPOL [Concomitant]
     Active Substance: SIVELESTAT SODIUM
     Indication: ACUTE RESPIRATORY DISTRESS SYNDROME
     Route: 065
     Dates: start: 20180817, end: 20180817
  88. DEXAMETHASONE SODIUM PHOSPHATE. [Concomitant]
     Active Substance: DEXAMETHASONE SODIUM PHOSPHATE
     Indication: PREMEDICATION
     Route: 042
     Dates: start: 20180607, end: 20180607
  89. RAMOSETRON [Concomitant]
     Active Substance: RAMOSETRON HYDROCHLORIDE
     Indication: NAUSEA
     Route: 065
     Dates: start: 20180628, end: 20180628
  90. THYRADIN-S [Concomitant]
     Active Substance: LEVOTHYROXINE
     Route: 065
     Dates: start: 20180711, end: 20180718
  91. MEROPENEM. [Concomitant]
     Active Substance: MEROPENEM
     Route: 065
     Dates: start: 20180702, end: 20180817
  92. OMEPRAZOLE. [Concomitant]
     Active Substance: OMEPRAZOLE
     Route: 065
     Dates: start: 20180703, end: 20180817
  93. NORADRENALIN [NOREPINEPHRINE] [Concomitant]
     Active Substance: NOREPINEPHRINE
     Route: 065
     Dates: start: 20180703, end: 20180703
  94. NICARDIPINE HYDROCHLORIDE. [Concomitant]
     Active Substance: NICARDIPINE HYDROCHLORIDE
     Indication: HYPERTENSION
     Route: 065
     Dates: start: 20180706, end: 20180730
  95. FUROSEMIDE. [Concomitant]
     Active Substance: FUROSEMIDE
     Indication: POLYURIA
     Route: 065
     Dates: start: 20180718, end: 20180718
  96. DIAMOX SEQUELS [Concomitant]
     Active Substance: ACETAZOLAMIDE
     Route: 065
     Dates: start: 20180725, end: 20180725
  97. SOLDACTONE [Concomitant]
     Active Substance: CANRENOATE POTASSIUM
     Indication: OEDEMA
     Route: 042
     Dates: start: 20180728, end: 20180731
  98. OCTREOTIDE ACETATE. [Concomitant]
     Active Substance: OCTREOTIDE ACETATE
     Dosage: INTESTINAL FLUID CONTROL
     Route: 056
     Dates: start: 20180806, end: 20180818

REACTIONS (6)
  - Small intestinal perforation [Not Recovered/Not Resolved]
  - Large intestine perforation [Not Recovered/Not Resolved]
  - Shock haemorrhagic [Recovered/Resolved]
  - Hypothyroidism [Not Recovered/Not Resolved]
  - Sepsis [Recovered/Resolved]
  - Amylase increased [Recovered/Resolved]

NARRATIVE: CASE EVENT DATE: 20180629
